FAERS Safety Report 21051641 (Version 1)
Quarter: 2022Q3

REPORT INFORMATION
  Report Type: Spontaneous
  Country: MA (occurrence: MA)
  Receive Date: 20220707
  Receipt Date: 20220707
  Transmission Date: 20221027
  Serious: Yes (Hospitalization)
  Sender: FDA-Public Use
  Company Number: MA-STRIDES ARCOLAB LIMITED-2022SP008478

PATIENT
  Age: 43 Year
  Sex: Female

DRUGS (5)
  1. OLANZAPINE [Interacting]
     Active Substance: OLANZAPINE
     Indication: Bipolar I disorder
     Dosage: 10 MG/DAY, A DOSE THAT WAS INCREASED TO 20 MG/DAY IN 2 WEEKS
     Route: 065
  2. OLANZAPINE [Interacting]
     Active Substance: OLANZAPINE
     Dosage: 20 MILLIGRAM, PER DAY
     Route: 065
  3. VALPROATE SODIUM [Interacting]
     Active Substance: VALPROATE SODIUM
     Indication: Bipolar I disorder
     Dosage: 1500 MILLIGRAM, PER DAY
     Route: 065
  4. DIAZEPAM [Concomitant]
     Active Substance: DIAZEPAM
     Indication: Product used for unknown indication
     Dosage: 30 MILLIGRAM, DIAZEPAM ADDED WITH A MAXIMUM DOSAGE OF 30 MG/DAY, DECREASED IN 5 MG/WEEK INCREMENTS.
     Route: 065
  5. DIAZEPAM [Concomitant]
     Active Substance: DIAZEPAM
     Dosage: 5 MILLIGRAM, PER WEEK
     Route: 065

REACTIONS (2)
  - Drug interaction [Recovered/Resolved]
  - Hepatitis cholestatic [Recovered/Resolved]
